FAERS Safety Report 4564691-7 (Version None)
Quarter: 2005Q1

REPORT INFORMATION
  Report Type: 
  Country: None (occurrence: None)
  Receive Date: 20050126
  Receipt Date: 20050113
  Transmission Date: 20050727
  Serious: Yes (Other)
  Sender: FDA-Public Use
  Company Number: 2005013661

PATIENT
  Age: 60 Year
  Sex: Male
  Weight: 125 kg

DRUGS (5)
  1. GABAPENTIN [Suspect]
     Indication: NEUROPATHIC PAIN
     Dosage: (1800 MG), ORAL
     Route: 048
     Dates: start: 20031122, end: 20041218
  2. SALBUTAMOL (SALBUTAMOL) [Concomitant]
  3. BENDROFLUMETHIAZIDE (BENDROFLUMETHIAZIDE) [Concomitant]
  4. VALSARTAN (VALSARTAN) [Concomitant]
  5. TOCOPHEROL (TOCOPHEROL) [Concomitant]

REACTIONS (4)
  - DYSAESTHESIA [None]
  - HYPOAESTHESIA [None]
  - NEUROPATHY PERIPHERAL [None]
  - PARAESTHESIA [None]
